FAERS Safety Report 9315286 (Version 1)
Quarter: 2020Q3

REPORT INFORMATION
  Report Type: Spontaneous
  Country: FR (occurrence: FR)
  Receive Date: 20130529
  Receipt Date: 20130529
  Transmission Date: 20201104
  Serious: Yes (Hospitalization)
  Sender: FDA-Public Use
  Company Number: FR-B.I. PHARMACEUTICALS,INC./RIDGEFIELD-2013-FF-01474FF

PATIENT
  Age: 84 Year
  Sex: Female

DRUGS (17)
  1. PARACETAMOL [Suspect]
     Active Substance: ACETAMINOPHEN
     Indication: PAIN
     Dosage: 2 G
     Route: 048
     Dates: start: 20130226, end: 20130307
  2. KETAMINE [Suspect]
     Active Substance: KETAMINE
     Indication: ANAESTHESIA
     Dates: start: 20130305, end: 20130305
  3. NEOSYNEPHRINE [Suspect]
     Active Substance: PHENYLEPHRINE HYDROCHLORIDE
     Dates: start: 20130305, end: 20130305
  4. PARACETAMOL [Suspect]
     Active Substance: ACETAMINOPHEN
     Indication: PAIN
     Route: 042
     Dates: start: 20130224, end: 20130225
  5. VANCOMYCINE [Suspect]
     Active Substance: VANCOMYCIN
     Dates: start: 20130305, end: 20130305
  6. CATAPRESSAN [Suspect]
     Active Substance: CLONIDINE
     Dates: start: 20130305, end: 20130305
  7. RANIPLEX [Suspect]
     Active Substance: RANITIDINE HYDROCHLORIDE
     Route: 048
     Dates: start: 20130305, end: 20130305
  8. EPHEDRINE. [Suspect]
     Active Substance: EPHEDRINE
     Dates: start: 20130305, end: 20130305
  9. SUFENTANIL [Suspect]
     Active Substance: SUFENTANIL
     Indication: ANAESTHESIA
     Dates: start: 20130305, end: 20130305
  10. CELESTENE [BETAMETHASONE] [Suspect]
     Active Substance: BETAMETHASONE
     Dates: start: 20130305, end: 20130305
  11. DROLEPTAN [Suspect]
     Active Substance: DROPERIDOL
     Dates: start: 20130305, end: 20130305
  12. MORPHINE [Suspect]
     Active Substance: MORPHINE
     Dates: start: 20130305, end: 20130305
  13. AUGMENTIN [Suspect]
     Active Substance: AMOXICILLIN\CLAVULANATE POTASSIUM
     Dates: start: 201303, end: 20130307
  14. DIPRIVAN [Suspect]
     Active Substance: PROPOFOL
     Indication: ANAESTHESIA
     Dates: start: 20130305, end: 20130305
  15. CELEBREX [Suspect]
     Active Substance: CELECOXIB
     Indication: PAIN
     Dosage: 400 MG
     Route: 048
     Dates: start: 20130227, end: 20130307
  16. OMEPRAZOLE. [Suspect]
     Active Substance: OMEPRAZOLE
     Route: 048
     Dates: start: 20130227, end: 20130307
  17. SEVORANE [Suspect]
     Active Substance: SEVOFLURANE
     Indication: ANAESTHESIA
     Dates: start: 20130305, end: 20130305

REACTIONS (2)
  - Cholestasis [Recovered/Resolved]
  - Hepatocellular injury [Recovered/Resolved]

NARRATIVE: CASE EVENT DATE: 20130306
